FAERS Safety Report 12839026 (Version 1)
Quarter: 2016Q4

REPORT INFORMATION
  Report Type: Spontaneous
  Country: US (occurrence: US)
  Receive Date: 20161011
  Receipt Date: 20161011
  Transmission Date: 20170207
  Serious: No
  Sender: FDA-Public Use
  Company Number: None

PATIENT
  Age: 5 Year
  Sex: Male

DRUGS (5)
  1. PULMOZYME [Concomitant]
     Active Substance: DORNASE ALFA
  2. QVAR [Suspect]
     Active Substance: BECLOMETHASONE DIPROPIONATE
     Dates: end: 20160901
  3. ALBUTEROL. [Concomitant]
     Active Substance: ALBUTEROL
  4. HYPERTONIC SALINE [Concomitant]
     Active Substance: SODIUM CHLORIDE
  5. KALYDECO [Concomitant]
     Active Substance: IVACAFTOR

REACTIONS (3)
  - Suicidal ideation [None]
  - Crying [None]
  - Depression [None]

NARRATIVE: CASE EVENT DATE: 20160930
